FAERS Safety Report 7720533-X (Version None)
Quarter: 2011Q3

REPORT INFORMATION
  Report Type: 
  Country: None (occurrence: None)
  Receive Date: 20110831
  Receipt Date: 20110831
  Transmission Date: 20111222
  Serious: Yes (Hospitalization)
  Sender: FDA-Public Use
  Company Number: None

PATIENT
  Age: 70 Year
  Sex: Female
  Weight: 65 kg

DRUGS (12)
  1. OXYCODONE AND ACETAMINOPHEN [Concomitant]
     Route: 048
  2. ALENDRONATE SODIUM [Concomitant]
     Route: 048
  3. PREDNISONE [Concomitant]
     Route: 048
  4. FUROSEMIDE [Concomitant]
     Route: 048
  5. ALBUTEROL INHALER [Concomitant]
  6. VERAPAMIL [Concomitant]
     Route: 048
  7. GABAPENTIN [Suspect]
     Indication: BACK PAIN
     Dosage: 300 MG
     Route: 048
  8. ATIVAN [Concomitant]
     Route: 048
  9. SPIRONOLACTONE [Concomitant]
     Route: 048
  10. FLUTICASONE PROPIONATE [Concomitant]
  11. ZOLPIDEM [Concomitant]
     Route: 048
  12. AMITRIPTYLINE HCL [Concomitant]
     Route: 048

REACTIONS (6)
  - CONFUSIONAL STATE [None]
  - CARDIOPULMONARY FAILURE [None]
  - CARDIO-RESPIRATORY ARREST [None]
  - HALLUCINATION [None]
  - LETHARGY [None]
  - HYPOTENSION [None]
